FAERS Safety Report 24219851 (Version 1)
Quarter: 2024Q3

REPORT INFORMATION
  Report Type: Spontaneous
  Country: US (occurrence: US)
  Receive Date: 20240817
  Receipt Date: 20240817
  Transmission Date: 20241016
  Serious: Yes (Death, Hospitalization, Other)
  Sender: BOEHRINGER INGELHEIM
  Company Number: US-BoehringerIngelheim-2024-BI-046240

PATIENT
  Age: 88 Year

DRUGS (3)
  1. JARDIANCE [Suspect]
     Active Substance: EMPAGLIFLOZIN
     Indication: Product used for unknown indication
  2. VYNDAMAX [Concomitant]
     Active Substance: TAFAMIDIS
     Indication: Product used for unknown indication
     Dates: start: 20240426
  3. TORSEMIDE [Concomitant]
     Active Substance: TORSEMIDE
     Indication: Diuretic therapy

REACTIONS (13)
  - Vomiting [Fatal]
  - Loss of consciousness [Fatal]
  - Fall [Fatal]
  - Localised oedema [Fatal]
  - Blood pressure decreased [Fatal]
  - Cardiac failure congestive [Fatal]
  - Dyspnoea [Fatal]
  - Urinary tract infection [Unknown]
  - Atrial fibrillation [Unknown]
  - Asthenia [Unknown]
  - Cardiac disorder [Unknown]
  - Chronic kidney disease [Unknown]
  - Hypertension [Unknown]

NARRATIVE: CASE EVENT DATE: 20240601
